FAERS Safety Report 24324978 (Version 2)
Quarter: 2024Q4

REPORT INFORMATION
  Report Type: Spontaneous
  Country: GB (occurrence: GB)
  Receive Date: 20240916
  Receipt Date: 20241031
  Transmission Date: 20250115
  Serious: Yes (Death, Hospitalization)
  Sender: VERTEX
  Company Number: GB-VERTEX PHARMACEUTICALS-2024-014512

PATIENT
  Sex: Female

DRUGS (4)
  1. ELEXACAFTOR\IVACAFTOR\TEZACAFTOR [Suspect]
     Active Substance: ELEXACAFTOR\IVACAFTOR\TEZACAFTOR
     Indication: Cystic fibrosis
     Dosage: TWO TABLETS (75 MG IVA/ 50 MG TEZA/ 100MG ELEXA) IN MORNING
     Route: 048
  2. KALYDECO [Suspect]
     Active Substance: IVACAFTOR
     Indication: Cystic fibrosis
     Dosage: UNKNOWN FREQUENCY
     Route: 048
  3. PULMOZYME [Concomitant]
     Active Substance: DORNASE ALFA
  4. AZTREONAM [Concomitant]
     Active Substance: AZTREONAM

REACTIONS (2)
  - Death [Fatal]
  - Hospitalisation [Unknown]

NARRATIVE: CASE EVENT DATE: 20240101
